FAERS Safety Report 17185699 (Version 3)
Quarter: 2020Q1

REPORT INFORMATION
  Report Type: Spontaneous
  Country: FR (occurrence: FR)
  Receive Date: 20191220
  Receipt Date: 20200118
  Transmission Date: 20200409
  Serious: Yes (Hospitalization, Other)
  Sender: FDA-Public Use
  Company Number: FR-ZYDUS-044794

PATIENT
  Age: 72 Year
  Sex: Male

DRUGS (3)
  1. METFORMIN [Suspect]
     Active Substance: METFORMIN HYDROCHLORIDE
     Indication: TYPE 2 DIABETES MELLITUS
     Dosage: DOSE: 1000 MG MORNING AND EVENING
     Route: 065
  2. IBUPROFEN. [Interacting]
     Active Substance: IBUPROFEN
     Indication: PRODUCT USED FOR UNKNOWN INDICATION
     Route: 065
  3. DOLUTEGRAVIR/RILPIVIRINE [Interacting]
     Active Substance: DOLUTEGRAVIR SODIUM\RILPIVIRINE HYDROCHLORIDE
     Indication: HIV INFECTION
     Dosage: DOLUTEGRAVIR/RILPIVIRINE 50 MG/25 MG

REACTIONS (5)
  - Drug interaction [Unknown]
  - Vomiting [Unknown]
  - Lactic acidosis [Unknown]
  - Abdominal pain [Unknown]
  - Acute kidney injury [Unknown]
